FAERS Safety Report 25483493 (Version 1)
Quarter: 2025Q2

REPORT INFORMATION
  Report Type: Spontaneous
  Country: PT (occurrence: PT)
  Receive Date: 20250626
  Receipt Date: 20250626
  Transmission Date: 20250717
  Serious: Yes (Other)
  Sender: AMGEN
  Company Number: PT-AMGEN-PRTSP2025121881

PATIENT

DRUGS (2)
  1. BEVACIZUMAB [Suspect]
     Active Substance: BEVACIZUMAB
     Indication: Cervix carcinoma stage IV
     Route: 065
  2. PEMBROLIZUMAB [Concomitant]
     Active Substance: PEMBROLIZUMAB
     Indication: Cervix carcinoma stage IV
     Route: 065

REACTIONS (13)
  - Pneumonitis [Unknown]
  - Haemophagocytic lymphohistiocytosis [Unknown]
  - Hepatitis [Unknown]
  - Mucocutaneous toxicity [Unknown]
  - Cervix carcinoma recurrent [Unknown]
  - Neutropenia [Unknown]
  - Febrile neutropenia [Unknown]
  - Cervix cancer metastatic [Unknown]
  - Thrombocytopenia [Unknown]
  - Therapeutic response delayed [Unknown]
  - Anaemia [Unknown]
  - Hypertension [Unknown]
  - Drug effect less than expected [Unknown]
